FAERS Safety Report 9185565 (Version 1)
Quarter: 2012Q4

REPORT INFORMATION
  Report Type: 
  Country: DE (occurrence: DE)
  Receive Date: 20121101
  Receipt Date: 20121101
  Transmission Date: 20130627
  Serious: Yes (Hospitalization)
  Sender: FDA-Public Use
  Company Number: DE-ELI_LILLY_AND_COMPANY-DE201210006318

PATIENT
  Age: 70 Year
  Sex: Female

DRUGS (9)
  1. HUMALOG LISPRO [Suspect]
     Indication: DIABETES MELLITUS
     Dosage: UNK
     Route: 058
     Dates: start: 1972
  2. PANTOPRAZOLE [Concomitant]
  3. TORASEMIDE [Concomitant]
  4. BISO [Concomitant]
  5. MOXONIDINE [Concomitant]
  6. LOSARTAN + HIDROCLOROTIAZIDA [Concomitant]
  7. FELODIPINE [Concomitant]
  8. NOVAMINSULFON [Concomitant]
  9. LEVEMIR [Concomitant]
     Dosage: UNK
     Dates: start: 201206

REACTIONS (8)
  - Fall [Unknown]
  - Foot operation [Unknown]
  - Knee operation [Unknown]
  - Blood glucose fluctuation [Recovering/Resolving]
  - Blood glucose increased [Recovering/Resolving]
  - Asthenia [Not Recovered/Not Resolved]
  - Aphasia [Not Recovered/Not Resolved]
  - Gait disturbance [Not Recovered/Not Resolved]
